FAERS Safety Report 8850901 (Version 2)
Quarter: 2012Q4

REPORT INFORMATION
  Report Type: 
  Country: US (occurrence: US)
  Receive Date: 20121019
  Receipt Date: 20121105
  Transmission Date: 20130627
  Serious: No
  Sender: FDA-Public Use
  Company Number: US-PFIZER INC-2012257564

PATIENT
  Age: 69 Year
  Sex: Female
  Weight: 89.8 kg

DRUGS (1)
  1. NORVASC [Suspect]
     Dosage: 10 mg, daily
     Route: 048

REACTIONS (2)
  - Limb discomfort [Recovering/Resolving]
  - Fall [Unknown]
